FAERS Safety Report 4349829-9 (Version None)
Quarter: 2004Q2

REPORT INFORMATION
  Report Type: 
  Country: None (occurrence: None)
  Receive Date: 20040426
  Receipt Date: 20040412
  Transmission Date: 20050107
  Serious: Yes (Hospitalization)
  Sender: FDA-Public Use
  Company Number: 04P-163-0257028-00

PATIENT
  Age: 74 Year
  Sex: Male

DRUGS (13)
  1. HUMIRA [Suspect]
     Indication: RHEUMATOID ARTHRITIS
     Dosage: 40 MG, 1 IN 2 WK, SUBCUTANEOUS
     Route: 058
     Dates: start: 20030407, end: 20040224
  2. HUMIRA [Suspect]
     Indication: RHEUMATOID ARTHRITIS
     Dosage: 40 MG, 1 IN 2 WK, SUBCUTANEOUS
     Route: 058
     Dates: start: 20030412
  3. COUMADIN [Concomitant]
  4. ENALAPRIL MALEATE [Concomitant]
  5. METOPROLOL TARTRATE [Concomitant]
  6. ISOSORBIDE MONONITRATE [Concomitant]
  7. DOCUSATE SODIUM [Concomitant]
  8. POTASSIUM [Concomitant]
  9. PROPACET 100 [Concomitant]
  10. CALCIUM CARBONATE [Concomitant]
  11. METHYLPREDNISOLONE [Concomitant]
  12. ALENDRONATE SODIUM [Concomitant]
  13. CELECOXIB [Concomitant]

REACTIONS (8)
  - ARTHRALGIA [None]
  - BACK PAIN [None]
  - BLOOD DISORDER [None]
  - COLONIC POLYP [None]
  - INFECTION [None]
  - POLYP [None]
  - PYREXIA [None]
  - VASCULAR RUPTURE [None]
